FAERS Safety Report 7297538-9 (Version None)
Quarter: 2011Q1

REPORT INFORMATION
  Report Type: 
  Country: None (occurrence: None)
  Receive Date: 20110216
  Receipt Date: 20110204
  Transmission Date: 20110831
  Serious: Yes (Hospitalization)
  Sender: FDA-Public Use
  Company Number: CA-GENENTECH-303525

PATIENT
  Sex: Male
  Weight: 78 kg

DRUGS (3)
  1. HYDROMORPHONE HCL [Concomitant]
     Indication: PRODUCT USED FOR UNKNOWN INDICATION
     Dosage: UNK
  2. RITUXIMAB [Suspect]
     Indication: CHRONIC LYMPHOCYTIC LEUKAEMIA
     Dosage: 700 MG, Q28D
     Route: 042
     Dates: start: 20100505
  3. ALLOPURINOL [Concomitant]
     Indication: PRODUCT USED FOR UNKNOWN INDICATION
     Dosage: UNK

REACTIONS (10)
  - PULMONARY OEDEMA [None]
  - DEATH [None]
  - FALL [None]
  - BEDRIDDEN [None]
  - CONFUSIONAL STATE [None]
  - SPINAL FRACTURE [None]
  - RIB FRACTURE [None]
  - FATIGUE [None]
  - DYSPNOEA [None]
  - DEPRESSION [None]
